FAERS Safety Report 9440775 (Version 1)
Quarter: 2013Q3

REPORT INFORMATION
  Report Type: Spontaneous
  Country: IT (occurrence: IT)
  Receive Date: 20130805
  Receipt Date: 20130805
  Transmission Date: 20140515
  Serious: Yes (Other)
  Sender: FDA-Public Use
  Company Number: IT-ALLERGAN-1311524US

PATIENT
  Age: 77 Year
  Sex: Male

DRUGS (2)
  1. COMBIGAN [Suspect]
     Indication: INTRAOCULAR PRESSURE INCREASED
     Dosage: 2 DF, ONCE A DAY
     Route: 047
     Dates: start: 20130702, end: 20130703
  2. LUMIGAN [Concomitant]
     Indication: PRODUCT USED FOR UNKNOWN INDICATION

REACTIONS (2)
  - Vision blurred [Recovering/Resolving]
  - Visual acuity reduced [Recovering/Resolving]
